FAERS Safety Report 20489307 (Version 1)
Quarter: 2022Q1

REPORT INFORMATION
  Report Type: Spontaneous
  Country: US (occurrence: None)
  Receive Date: 20220217
  Receipt Date: 20220217
  Transmission Date: 20220423
  Serious: Yes (Hospitalization)
  Sender: FDA-Public Use
  Company Number: None

PATIENT
  Age: 63 Year
  Sex: Male
  Weight: 56 kg

DRUGS (2)
  1. ATOVAQUONE\PROGUANIL [Suspect]
     Active Substance: ATOVAQUONE\PROGUANIL
     Indication: Malaria
     Dates: start: 20210420, end: 20210923
  2. AMIODARONE [Suspect]
     Active Substance: AMIODARONE
     Indication: Atrial fibrillation
     Dosage: FREQUENCY : TWICE A DAY;?
     Dates: start: 20200101, end: 20211029

REACTIONS (3)
  - Cholestasis [None]
  - Hepatitis viral [None]
  - Drug-induced liver injury [None]

NARRATIVE: CASE EVENT DATE: 20211029
